FAERS Safety Report 8940073 (Version 1)
Quarter: 2012Q4

REPORT INFORMATION
  Report Type: 
  Country: FR (occurrence: FR)
  Receive Date: 20121203
  Receipt Date: 20121203
  Transmission Date: 20130627
  Serious: Yes (Death, Congenital Anomaly)
  Sender: FDA-Public Use
  Company Number: FR-JNJFOC-20121112523

PATIENT

DRUGS (1)
  1. EVRA [Suspect]
     Indication: FOETAL EXPOSURE DURING PREGNANCY
     Route: 015

REACTIONS (1)
  - Cardiac arrest [Fatal]
